FAERS Safety Report 22099113 (Version 1)
Quarter: 2023Q1

REPORT INFORMATION
  Report Type: Report from Study
  Country: US (occurrence: US)
  Receive Date: 20230315
  Receipt Date: 20230315
  Transmission Date: 20230418
  Serious: Yes (Death)
  Sender: FDA-Public Use
  Company Number: US-MYLANLABS-2023M1027686

PATIENT

DRUGS (4)
  1. DOXORUBICIN [Suspect]
     Active Substance: DOXORUBICIN
     Indication: Hodgkin^s disease
     Dosage: 25 MILLIGRAM/SQ. METER, CYCLE; ABVD REGIMEN: ON DAYS 1 AND 15 OF EACH 28-DAY CYCLE
     Route: 042
  2. BLEOMYCIN [Suspect]
     Active Substance: BLEOMYCIN SULFATE
     Indication: Hodgkin^s disease
     Dosage: UNK, CYCLE; ABVD REGIMEN: 10 U/M*2 ON DAYS 1 AND 15 OF EACH 28-DAY CYCLE
     Route: 042
  3. DACARBAZINE [Suspect]
     Active Substance: DACARBAZINE
     Indication: Hodgkin^s disease
     Dosage: 375 MILLIGRAM/SQ. METER, CYCLE; ABVD REGIMEN: ON DAYS 1 AND 15 OF EACH 28-DAY CYCLE
     Route: 042
  4. VINBLASTINE [Suspect]
     Active Substance: VINBLASTINE
     Indication: Hodgkin^s disease
     Dosage: 6 MILLIGRAM/SQ. METER, CYCLE; ABVD REGIMEN: ON DAYS 1 AND 15 OF EACH 28-DAY CYCLE
     Route: 042

REACTIONS (1)
  - Cardiac arrest [Fatal]
